FAERS Safety Report 17319883 (Version 1)
Quarter: 2020Q1

REPORT INFORMATION
  Report Type: Spontaneous
  Country: US (occurrence: US)
  Receive Date: 20200126
  Receipt Date: 20200126
  Transmission Date: 20200409
  Serious: No
  Sender: FDA-Public Use
  Company Number: US-AMGEN-USASP2020010795

PATIENT
  Age: 68 Year
  Sex: Male
  Weight: 127 kg

DRUGS (31)
  1. FILGRASTIM [Suspect]
     Active Substance: FILGRASTIM
     Indication: NEUTROPENIA
     Dosage: 480 MICROGRAM
     Route: 058
     Dates: start: 20000223
  2. COLCHICINE. [Suspect]
     Active Substance: COLCHICINE
     Indication: GOUTY ARTHRITIS
     Dosage: 1.2 MILLIGRAM
     Route: 048
     Dates: start: 20000214
  3. COLCHICINE. [Suspect]
     Active Substance: COLCHICINE
     Dosage: 3.6 MILLIGRAM
     Route: 048
     Dates: start: 20000215
  4. COLCHICINE. [Suspect]
     Active Substance: COLCHICINE
     Dosage: 0.6 MILLIGRAM, BID
     Route: 048
     Dates: start: 20000218
  5. GLYBURIDE. [Concomitant]
     Active Substance: GLYBURIDE
     Dosage: 10 MILLIGRAM, BID
  6. COLCHICINE. [Suspect]
     Active Substance: COLCHICINE
     Dosage: 1.8 MILLIGRAM
     Route: 048
     Dates: start: 20000217
  7. POTASSIUM CHLORIDE. [Concomitant]
     Active Substance: POTASSIUM CHLORIDE
     Dosage: 40 MEQ/D
  8. LISINOPRIL. [Concomitant]
     Active Substance: LISINOPRIL
     Dosage: 40 MILLIGRAM, BID
  9. LANSOPRAZOL [Concomitant]
     Active Substance: LANSOPRAZOLE
     Dosage: 30 MILLIGRAM, QD
  10. TRIAMCINOLONE [Concomitant]
     Active Substance: TRIAMCINOLONE
     Dosage: 200 MICROGRAM, TID, INHALER
     Route: 048
  11. DIPHENOXYLATE/ATROPINE [Concomitant]
     Active Substance: ATROPINE\DIPHENOXYLATE
     Indication: DIARRHOEA
     Dosage: 2.5/0.025 MG, AFTER EACH LOOSE STOOL
  12. COLCHICINE. [Suspect]
     Active Substance: COLCHICINE
     Dosage: 0.6 MILLIGRAM, EVERY FOUR HOURS
     Route: 048
     Dates: start: 20000219
  13. COLCHICINE. [Suspect]
     Active Substance: COLCHICINE
     Dosage: 0.6 MILLIGRAM, QD
     Route: 048
     Dates: start: 20000222, end: 20000222
  14. VERAPAMIL [Concomitant]
     Active Substance: VERAPAMIL HYDROCHLORIDE
     Dosage: 240 MILLIGRAM, BID (SUSTAINED-RELEASE)
  15. ALBUTEROL [SALBUTAMOL] [Concomitant]
     Active Substance: ALBUTEROL
     Dosage: UNK UNK, AS NECESSARY, INHALER
     Route: 048
  16. COLCHICINE. [Suspect]
     Active Substance: COLCHICINE
     Dosage: 0.6 MILLIGRAM, QHS
     Route: 048
     Dates: start: 20000220
  17. IPRATROPIUM BROMIDE. [Concomitant]
     Active Substance: IPRATROPIUM BROMIDE
     Dosage: 36 MICROGRAM, TID, INHALER
     Route: 048
  18. PREDNISONE. [Concomitant]
     Active Substance: PREDNISONE
     Indication: PAIN
     Dosage: 20 MILLIGRAM, QD
  19. DIGOXIN. [Concomitant]
     Active Substance: DIGOXIN
     Dosage: 0.125 MILLIGRAM, QD
  20. MEPERIDINE [PETHIDINE] [Concomitant]
     Active Substance: MEPERIDINE
     Indication: PAIN
     Dosage: 50 MILLIGRAM
     Route: 030
  21. FILGRASTIM [Suspect]
     Active Substance: FILGRASTIM
     Dosage: 480 MICROGRAM
     Route: 058
     Dates: start: 20000226
  22. WARFARIN [Concomitant]
     Active Substance: WARFARIN
     Dosage: 5 MILLIGRAM, QOD/ 10 MILLIGRAM, QOD
  23. METOLAZONE. [Concomitant]
     Active Substance: METOLAZONE
     Dosage: 2.5 MILLIGRAM, Q3WK, MONDAY, WEDNESDAY, FRIDAY
     Dates: end: 20000215
  24. HYDROXYZINE [Concomitant]
     Active Substance: HYDROXYZINE HYDROCHLORIDE
     Indication: PAIN
     Dosage: 50 MILLIGRAM, EVERY TWO TO THREE HOURS
     Route: 030
  25. MISOPROSTOL. [Concomitant]
     Active Substance: MISOPROSTOL
     Dosage: 100 MICROGRAM, BID (RECEIVED ONLY 5 DOSES)
  26. COLCHICINE. [Suspect]
     Active Substance: COLCHICINE
     Dosage: 3.6 MILLIGRAM
     Route: 048
     Dates: start: 20000216
  27. COLCHICINE. [Suspect]
     Active Substance: COLCHICINE
     Dosage: 0.6 MILLIGRAM, QD
     Route: 048
     Dates: start: 20000221
  28. THEOPHYLLINE [Concomitant]
     Active Substance: THEOPHYLLINE ANHYDROUS
     Dosage: 450 MILLIGRAM, BID (TIMED RELEASE)
  29. ASPIRIN [ACETYLSALICYLIC ACID] [Concomitant]
     Active Substance: ASPIRIN
     Dosage: 325 MILLIGRAM, QD
  30. FLUTICASONE. [Concomitant]
     Active Substance: FLUTICASONE
     Dosage: 100 MICROGRAM, QD
     Route: 045
  31. METFORMIN [Concomitant]
     Active Substance: METFORMIN HYDROCHLORIDE
     Dosage: 1000 MILLIGRAM, BID
     Dates: end: 20000214

REACTIONS (1)
  - Off label use [Unknown]

NARRATIVE: CASE EVENT DATE: 20190223
